FAERS Safety Report 12428184 (Version 1)
Quarter: 2016Q2

REPORT INFORMATION
  Report Type: Report from Study
  Country: ES (occurrence: ES)
  Receive Date: 20160602
  Receipt Date: 20160602
  Transmission Date: 20160815
  Serious: Yes (Hospitalization)
  Sender: FDA-Public Use
  Company Number: ES-ROCHE-1751208

PATIENT
  Age: 75 Year
  Sex: Female
  Weight: 47 kg

DRUGS (8)
  1. ATEZOLIZUMAB [Suspect]
     Active Substance: ATEZOLIZUMAB
     Indication: NON-SMALL CELL LUNG CANCER
     Dosage: DAY 1 OF EACH 21 DAYS CYCLE.?MOST RECENT DOSE ADMINISTERED ON 15/APR/2016 AT 11:30, PRIOR TO THE EVE
     Route: 042
     Dates: start: 20160415
  2. CARBOPLATIN. [Suspect]
     Active Substance: CARBOPLATIN
     Dosage: DOSE REDUCED
     Route: 042
  3. NAB-PACLITAXEL [Suspect]
     Active Substance: PACLITAXEL
     Indication: NON-SMALL CELL LUNG CANCER
     Dosage: ON DAYS 1,8 AND 15 OF EACH 21 DAYS CYCLE.?MOST RECENT DOSE (140 MG) ADMINISTERED ON 29/APR/2016 AT 1
     Route: 042
     Dates: start: 20160415
  4. CARBOPLATIN. [Suspect]
     Active Substance: CARBOPLATIN
     Indication: NON-SMALL CELL LUNG CANCER
     Dosage: ON DAY 1 OF EACH 21 DAYS CYCLE?TARGET AUC = 6 MG/ML/MIN?MOST RECENT DOSE (432 MG) ADMINISTERED ON 15
     Route: 042
     Dates: start: 20160415
  5. OMEPRAZOLE. [Concomitant]
     Active Substance: OMEPRAZOLE
     Indication: PROPHYLAXIS
  6. MIRTAZAPINE. [Concomitant]
     Active Substance: MIRTAZAPINE
     Indication: DEPRESSION
  7. NAB-PACLITAXEL [Suspect]
     Active Substance: PACLITAXEL
     Dosage: DOSE REDUCED
     Route: 042
  8. NAPROXEN. [Concomitant]
     Active Substance: NAPROXEN
     Indication: FLANK PAIN
     Route: 065
     Dates: end: 20160413

REACTIONS (1)
  - Leukopenia [Recovered/Resolved]

NARRATIVE: CASE EVENT DATE: 20160430
